FAERS Safety Report 16542455 (Version 3)
Quarter: 2020Q4

REPORT INFORMATION
  Report Type: Report from Study
  Country: None (occurrence: US)
  Receive Date: 20190708
  Receipt Date: 20201229
  Transmission Date: 20210113
  Serious: Yes (Death)
  Sender: FDA-Public Use
  Company Number: US-ABBVIE-18P-163-2355171-00

PATIENT
  Age: 71 Year
  Sex: Male

DRUGS (5)
  1. VENCLEXTA [Suspect]
     Active Substance: VENETOCLAX
     Indication: CHEMOTHERAPY
     Route: 048
     Dates: start: 20181110, end: 20181213
  2. VENCLEXTA [Suspect]
     Active Substance: VENETOCLAX
     Indication: MONOCLONAL GAMMOPATHY
  3. VENCLEXTA [Suspect]
     Active Substance: VENETOCLAX
     Indication: NEOPLASM MALIGNANT
  4. VENCLEXTA [Suspect]
     Active Substance: VENETOCLAX
     Indication: PLASMA CELL MYELOMA
     Dosage: FOR 30 DAYS; WITH MEAL AND WATER
     Route: 048
     Dates: start: 20180310, end: 20180609
  5. VENCLEXTA [Suspect]
     Active Substance: VENETOCLAX
     Indication: PROPHYLAXIS OF NAUSEA AND VOMITING

REACTIONS (2)
  - Intentional product use issue [Unknown]
  - Death [Fatal]

NARRATIVE: CASE EVENT DATE: 2018
